FAERS Safety Report 7060683-7 (Version None)
Quarter: 2010Q4

REPORT INFORMATION
  Report Type: 
  Country: None (occurrence: None)
  Receive Date: 20101025
  Receipt Date: 20101013
  Transmission Date: 20110411
  Serious: Yes (Death, Other)
  Sender: FDA-Public Use
  Company Number: JP-ROCHE-734604

PATIENT
  Age: 63 Year
  Sex: Male

DRUGS (2)
  1. COPEGUS [Suspect]
     Dosage: DOSAGE IS UNCERTAIN.
     Route: 048
     Dates: start: 20100101, end: 20100101
  2. PEGINTERFERON ALFA-2B [Suspect]
     Route: 058
     Dates: start: 20100101, end: 20100101

REACTIONS (4)
  - AUTOIMMUNE HEPATITIS [None]
  - CHOLECYSTITIS [None]
  - PERITONITIS BACTERIAL [None]
  - UPPER GASTROINTESTINAL HAEMORRHAGE [None]
